FAERS Safety Report 11784719 (Version 1)
Quarter: 2015Q4

REPORT INFORMATION
  Report Type: Report from Study
  Country: US (occurrence: US)
  Receive Date: 20151130
  Receipt Date: 20151130
  Transmission Date: 20160305
  Serious: Yes (Hospitalization)
  Sender: FDA-Public Use
  Company Number: US-ROCHE-1666916

PATIENT
  Age: 73 Year
  Sex: Female
  Weight: 67.6 kg

DRUGS (2)
  1. BEVACIZUMAB [Suspect]
     Active Substance: BEVACIZUMAB
     Indication: BREAST CANCER
     Dosage: OVER 30-90 MINUTES ON DAYS 1 AND 15?DATE OF LAST DOSE PRIOR TO SAE: 22/SEP/2009?28 DAYS CYCLE
     Route: 042
     Dates: start: 20090615
  2. PACLITAXEL. [Suspect]
     Active Substance: PACLITAXEL
     Indication: BREAST CANCER
     Dosage: OVER 1 HR ON DAYS 1, 8 AND 15 ?28 DAYS CYCLE
     Route: 042
     Dates: start: 20090615

REACTIONS (5)
  - Hypertension [Unknown]
  - Fatigue [Unknown]
  - Musculoskeletal chest pain [Unknown]
  - Cough [Not Recovered/Not Resolved]
  - Dyspnoea [Unknown]

NARRATIVE: CASE EVENT DATE: 20090925
